FAERS Safety Report 8175068-X (Version None)
Quarter: 2012Q1

REPORT INFORMATION
  Report Type: 
  Country: None (occurrence: None)
  Receive Date: 20120229
  Receipt Date: 20120222
  Transmission Date: 20120608
  Serious: Yes (Congenital Anomaly)
  Sender: FDA-Public Use
  Company Number: PHHY2011US90204

PATIENT

DRUGS (2)
  1. LAMOTRIGINE [Suspect]
     Indication: EPILEPSY
     Dosage: MATERNAL DOSE :100 MG, UNK
     Route: 064
  2. CARBAMAZEPINE [Suspect]
     Indication: EPILEPSY
     Dosage: MATERNAL DOSE :200 MG, UNK
     Route: 064

REACTIONS (2)
  - MENINGOMYELOCELE [None]
  - FOETAL EXPOSURE DURING PREGNANCY [None]
